FAERS Safety Report 6683948-7 (Version None)
Quarter: 2010Q2

REPORT INFORMATION
  Report Type: 
  Country: None (occurrence: None)
  Receive Date: 20100416
  Receipt Date: 20100408
  Transmission Date: 20101027
  Serious: Yes (Hospitalization)
  Sender: FDA-Public Use
  Company Number: FR-PFIZER INC-2010044411

PATIENT
  Age: 52 Year
  Sex: Male

DRUGS (9)
  1. AMLOR [Suspect]
     Dosage: UNK
     Dates: end: 20100330
  2. METHOTREXATE SODIUM [Suspect]
     Indication: ACUTE MYELOID LEUKAEMIA
     Dosage: UNK
     Dates: end: 20100312
  3. PURINETHOL [Suspect]
     Indication: ACUTE MYELOID LEUKAEMIA
     Dosage: UNK
     Route: 048
     Dates: end: 20100315
  4. BACTRIM DS [Suspect]
     Indication: SINUSITIS
     Dosage: 3 DF, WEEKLY
     Route: 048
     Dates: start: 20100215, end: 20100323
  5. ZELITREX [Suspect]
     Dosage: 500 MG, 2X/DAY
     Dates: start: 20100215, end: 20100330
  6. AUGMENTIN '125' [Suspect]
     Indication: SINUSITIS
     Dosage: 2 G DAILY
     Dates: start: 20100323, end: 20100330
  7. SOLUPRED [Suspect]
     Dosage: 40 MG DAILY
     Route: 048
     Dates: start: 20100323, end: 20100325
  8. NASONEX [Suspect]
     Dosage: UNK
     Route: 055
     Dates: start: 20100301, end: 20100301
  9. NEXIUM [Suspect]
     Dosage: UNK
     Dates: start: 20090910, end: 20100330

REACTIONS (3)
  - AGRANULOCYTOSIS [None]
  - HEPATITIS [None]
  - THROMBOCYTOPENIA [None]
